FAERS Safety Report 5836057-0 (Version None)
Quarter: 2008Q3

REPORT INFORMATION
  Report Type: 
  Country: None (occurrence: None)
  Receive Date: 20080806
  Receipt Date: 20080725
  Transmission Date: 20090109
  Serious: Yes (Other)
  Sender: FDA-Public Use
  Company Number: US-PFIZER INC-2008063523

PATIENT
  Sex: Female
  Weight: 59 kg

DRUGS (2)
  1. LYRICA [Suspect]
     Indication: NEUROPATHY PERIPHERAL
  2. WARFARIN SODIUM [Concomitant]

REACTIONS (4)
  - DEMENTIA [None]
  - DISTURBANCE IN ATTENTION [None]
  - NAUSEA [None]
  - VISION BLURRED [None]
